FAERS Safety Report 7814314-6 (Version None)
Quarter: 2011Q4

REPORT INFORMATION
  Report Type: 
  Country: None (occurrence: None)
  Receive Date: 20111014
  Receipt Date: 20111005
  Transmission Date: 20120403
  Serious: Yes (Other)
  Sender: FDA-Public Use
  Company Number: CH-NOVOPROD-333725

PATIENT

DRUGS (1)
  1. NORDITROPIN FLEXPRO [Suspect]
     Indication: SMALL FOR DATES BABY
     Dosage: 0.9 MG, QD
     Route: 058
     Dates: start: 20110126

REACTIONS (2)
  - OSTEOCHONDRITIS [None]
  - PAIN [None]
